FAERS Safety Report 6295702-9 (Version None)
Quarter: 2009Q3

REPORT INFORMATION
  Report Type: 
  Country: None (occurrence: None)
  Receive Date: 20090803
  Receipt Date: 20090803
  Transmission Date: 20100115
  Serious: No
  Sender: FDA-Public Use
  Company Number: None

PATIENT
  Age: 18 Year
  Sex: Female
  Weight: 99.8 kg

DRUGS (1)
  1. CEFAZOLIN [Suspect]
     Dosage: 2GM X1 IV
     Route: 042
     Dates: start: 20090721

REACTIONS (2)
  - DOCUMENTED HYPERSENSITIVITY TO ADMINISTERED DRUG [None]
  - URTICARIA [None]
